FAERS Safety Report 11825075 (Version 1)
Quarter: 2015Q4

REPORT INFORMATION
  Report Type: Spontaneous
  Country: JP (occurrence: JP)
  Receive Date: 20151211
  Receipt Date: 20151211
  Transmission Date: 20160305
  Serious: Yes (Disabling)
  Sender: FDA-Public Use
  Company Number: JP-009507513-1509JPN011392

PATIENT
  Age: 80 Year
  Sex: Female
  Weight: 57 kg

DRUGS (2)
  1. THEOPHYLLINE [Concomitant]
     Active Substance: THEOPHYLLINE ANHYDROUS
     Indication: INTERSTITIAL LUNG DISEASE
     Dosage: FORMULATION: POR
     Route: 048
  2. SINGULAIR [Suspect]
     Active Substance: MONTELUKAST SODIUM
     Indication: INTERSTITIAL LUNG DISEASE
     Dosage: 10 MG, QD
     Route: 048

REACTIONS (3)
  - Glomerulonephritis membranous [Recovering/Resolving]
  - Nephrotic syndrome [Recovering/Resolving]
  - Tubulointerstitial nephritis [Recovered/Resolved with Sequelae]
